FAERS Safety Report 8070407-2 (Version None)
Quarter: 2012Q1

REPORT INFORMATION
  Report Type: 
  Country: None (occurrence: None)
  Receive Date: 20120125
  Receipt Date: 20120120
  Transmission Date: 20120608
  Serious: Yes (Other)
  Sender: FDA-Public Use
  Company Number: US-SANOFI-AVENTIS-2012SA004654

PATIENT
  Age: 66 Year
  Sex: Male

DRUGS (3)
  1. INSULIN LISPRO [Concomitant]
     Indication: BLOOD GLUCOSE ABNORMAL
  2. OPTICLICK [Suspect]
     Dates: start: 20070101
  3. LANTUS [Suspect]
     Dosage: 100 TO 120 U
     Route: 058
     Dates: start: 20020101

REACTIONS (4)
  - TREMOR [None]
  - CEREBROVASCULAR ACCIDENT [None]
  - FALL [None]
  - JAW FRACTURE [None]
